FAERS Safety Report 7388649-8 (Version None)
Quarter: 2011Q1

REPORT INFORMATION
  Report Type: 
  Country: None (occurrence: None)
  Receive Date: 20110324
  Receipt Date: 20110316
  Transmission Date: 20110831
  Serious: Yes (Hospitalization)
  Sender: FDA-Public Use
  Company Number: 2011S1000291

PATIENT
  Age: 55 Year
  Sex: Female

DRUGS (8)
  1. EUTHYROX [Concomitant]
  2. METOPROLOL TARTRATE [Concomitant]
  3. ASPIRIN [Concomitant]
  4. LIVALO [Suspect]
     Indication: HYPERCHOLESTEROLAEMIA
     Dosage: 2 MG; 1X; PO, 2 MG; 1X; PO
     Route: 048
     Dates: start: 20100118, end: 20100223
  5. LIVALO [Suspect]
     Indication: HYPERCHOLESTEROLAEMIA
     Dosage: 2 MG; 1X; PO, 2 MG; 1X; PO
     Route: 048
     Dates: start: 20100125, end: 20100130
  6. NOVOLIN 30R /00806401/ [Concomitant]
  7. FOSINOPRIL SODIUM [Concomitant]
  8. AMLODIPINE BESYLATE [Concomitant]

REACTIONS (2)
  - NAUSEA [None]
  - VOMITING [None]
